FAERS Safety Report 9830101 (Version 2)
Quarter: 2015Q2

REPORT INFORMATION
  Report Type: Spontaneous
  Country: US (occurrence: US)
  Receive Date: 20140120
  Receipt Date: 20150629
  Transmission Date: 20150821
  Serious: Yes (Hospitalization, Other)
  Sender: FDA-Public Use
  Company Number: US-BAYER-2014-009528

PATIENT
  Age: 29 Year
  Sex: Male

DRUGS (4)
  1. FLAGYL [Concomitant]
     Active Substance: METRONIDAZOLE\METRONIDAZOLE HYDROCHLORIDE
     Indication: DIVERTICULITIS
  2. CIPRO [Suspect]
     Active Substance: CIPROFLOXACIN HYDROCHLORIDE
     Indication: DIVERTICULITIS
     Dosage: 500 MG, BID
     Route: 048
     Dates: start: 20120503, end: 20120513
  3. CIPRO [Suspect]
     Active Substance: CIPROFLOXACIN HYDROCHLORIDE
     Indication: DIVERTICULITIS
     Dosage: DAILY DOSE 400 MG
     Route: 042
     Dates: start: 20120427
  4. CIPROFLOXACIN. [Suspect]
     Active Substance: CIPROFLOXACIN
     Indication: DIVERTICULITIS
     Dosage: 500 MG, BID
     Route: 048
     Dates: start: 20120427, end: 20120429

REACTIONS (17)
  - Muscle twitching [None]
  - Nausea [None]
  - Pain [None]
  - Visual impairment [None]
  - Arthralgia [None]
  - Neuropathy peripheral [None]
  - Amnesia [None]
  - Dysphagia [None]
  - Decreased appetite [None]
  - Weight decreased [None]
  - Emotional disorder [None]
  - Muscular weakness [None]
  - Pain in extremity [None]
  - Nervousness [None]
  - Mobility decreased [None]
  - Urinary tract disorder [None]
  - Injury [None]

NARRATIVE: CASE EVENT DATE: 201205
